FAERS Safety Report 7568470-8 (Version None)
Quarter: 2011Q2

REPORT INFORMATION
  Report Type: 
  Country: None (occurrence: None)
  Receive Date: 20110623
  Receipt Date: 20110609
  Transmission Date: 20111010
  Serious: Yes (Congenital Anomaly)
  Sender: FDA-Public Use
  Company Number: SE-ELI_LILLY_AND_COMPANY-SE201106004055

PATIENT

DRUGS (3)
  1. SERTRALIN [Concomitant]
     Route: 064
  2. LERGIGAN [Concomitant]
     Dosage: 25 MG, UNK
     Route: 064
  3. ZYPREXA [Suspect]
     Dosage: 20 MG, UNK
     Route: 064

REACTIONS (2)
  - DRUG EXPOSURE DURING PREGNANCY [None]
  - MULTIPLE CONGENITAL ABNORMALITIES [None]
